FAERS Safety Report 8297300-4 (Version None)
Quarter: 2012Q2

REPORT INFORMATION
  Report Type: 
  Country: None (occurrence: None)
  Receive Date: 20120417
  Receipt Date: 20120403
  Transmission Date: 20120825
  Serious: Yes (Hospitalization, Other)
  Sender: FDA-Public Use
  Company Number: 2009AL005548

PATIENT
  Age: 59 Year
  Sex: Male
  Weight: 92.0802 kg

DRUGS (54)
  1. ANTIBIOTICS [Concomitant]
  2. BACTRIM [Concomitant]
  3. COREG [Concomitant]
  4. FLOMAX [Concomitant]
  5. HYTRIN [Concomitant]
  6. LANTUS [Concomitant]
  7. LIPITOR [Concomitant]
  8. LOPRESSOR [Concomitant]
  9. DYTAN [Concomitant]
  10. GLUCOPHAGE [Concomitant]
  11. LACTULOSE [Concomitant]
  12. LISINOPRIL [Concomitant]
  13. LOVENOX [Concomitant]
  14. NAPROSYN [Concomitant]
  15. PRAVASTATIN [Concomitant]
  16. VASOTEC [Concomitant]
  17. WARFARIN SODIUM [Concomitant]
  18. ZITHROMAX [Concomitant]
  19. ASPIRIN [Concomitant]
  20. CARDIZEM [Concomitant]
  21. DILTIAZEM HCL [Concomitant]
  22. LORTAB [Concomitant]
  23. POTASSIUM CHLORIDE [Concomitant]
  24. CARVEDILOL [Concomitant]
  25. CRESTOR [Concomitant]
  26. ENALAPRIL MALEATE [Concomitant]
  27. METOPROLOL TARTRATE [Concomitant]
  28. NOVOLOG [Concomitant]
  29. PENTAZOCINE LACTATE [Concomitant]
  30. VENTOLIN [Concomitant]
  31. AMIODARONE HCL [Concomitant]
  32. AVANDIA [Concomitant]
  33. MEDROL [Concomitant]
  34. CEPHALEXIN [Concomitant]
  35. KEFLEX [Concomitant]
  36. LASIX [Concomitant]
  37. NARCOTICS [Concomitant]
  38. DIGOXIN [Suspect]
     Indication: ATRIAL FIBRILLATION
     Dosage: 0.25 MG;QD;PO
     Route: 048
     Dates: start: 20061114, end: 20070613
  39. ARISTOCORT [Concomitant]
  40. COUMADIN [Concomitant]
  41. DECADRON [Concomitant]
  42. LEVAQUIN [Concomitant]
  43. METAMUCIL-2 [Concomitant]
  44. TALWIN [Concomitant]
  45. VIAGRA [Concomitant]
  46. XANAX [Concomitant]
  47. ALPRAZOLAM [Concomitant]
  48. GLUCOVANCE [Concomitant]
  49. GLYBURIDE AND METFORMIN HYDROCHLORIDE [Concomitant]
  50. GLYBURIDE [Concomitant]
  51. NITROGLYCERIN [Concomitant]
  52. PROVENTIL [Concomitant]
  53. VIOXX [Concomitant]
  54. ASCORBIC ACID [Concomitant]

REACTIONS (76)
  - BACK PAIN [None]
  - ERECTILE DYSFUNCTION [None]
  - NAUSEA [None]
  - MUSCULOSKELETAL STIFFNESS [None]
  - MITRAL VALVE DISEASE [None]
  - AORTIC VALVE INCOMPETENCE [None]
  - VENTRICULAR EXTRASYSTOLES [None]
  - FAMILY STRESS [None]
  - ECONOMIC PROBLEM [None]
  - SOCIAL AVOIDANT BEHAVIOUR [None]
  - DYSPNOEA [None]
  - LOSS OF CONTROL OF LEGS [None]
  - DIABETES MELLITUS [None]
  - CHRONIC OBSTRUCTIVE PULMONARY DISEASE [None]
  - PROSTATIC SPECIFIC ANTIGEN INCREASED [None]
  - GAIT DISTURBANCE [None]
  - MUSCULOSKELETAL PAIN [None]
  - ARTHRALGIA [None]
  - PNEUMONIA [None]
  - EMOTIONAL DISORDER [None]
  - ATRIAL FIBRILLATION [None]
  - BALANCE DISORDER [None]
  - HYPERLIPIDAEMIA [None]
  - CONSTIPATION [None]
  - BLOOD CHOLESTEROL INCREASED [None]
  - SPONDYLOLISTHESIS [None]
  - ATRIAL FLUTTER [None]
  - MULTIPLE INJURIES [None]
  - ANHEDONIA [None]
  - IMPAIRED WORK ABILITY [None]
  - PERIPHERAL SENSORIMOTOR NEUROPATHY [None]
  - CARDIOMYOPATHY [None]
  - CORONARY ARTERY DISEASE [None]
  - OROPHARYNGEAL PAIN [None]
  - BLOOD POTASSIUM INCREASED [None]
  - BLOOD TRIGLYCERIDES INCREASED [None]
  - VERTEBRAL FORAMINAL STENOSIS [None]
  - MITRAL VALVE INCOMPETENCE [None]
  - PAIN [None]
  - CHILLS [None]
  - BLOOD GLUCOSE INCREASED [None]
  - HYPOTHYROIDISM [None]
  - LIMB DISCOMFORT [None]
  - DYSPEPSIA [None]
  - INTERNATIONAL NORMALISED RATIO [None]
  - MYOCARDIAL ISCHAEMIA [None]
  - SPONDYLOLYSIS [None]
  - AORTIC VALVE CALCIFICATION [None]
  - TRICUSPID VALVE INCOMPETENCE [None]
  - ISCHAEMIC CARDIOMYOPATHY [None]
  - PERONEAL NERVE PALSY [None]
  - ATAXIA [None]
  - BRADYCARDIA [None]
  - DYSURIA [None]
  - OSTEOARTHRITIS [None]
  - ORTHOPNOEA [None]
  - ATRIOVENTRICULAR BLOCK COMPLETE [None]
  - IMPAIRED HEALING [None]
  - PROTHROMBIN TIME PROLONGED [None]
  - INTERVERTEBRAL DISC PROTRUSION [None]
  - MITRAL VALVE CALCIFICATION [None]
  - PULMONARY VALVE INCOMPETENCE [None]
  - THROMBOSIS [None]
  - FALL [None]
  - NECK PAIN [None]
  - DRY MOUTH [None]
  - POLLAKIURIA [None]
  - AORTIC CALCIFICATION [None]
  - PERICARDIAL EFFUSION [None]
  - HYPERTENSION [None]
  - URINARY INCONTINENCE [None]
  - CARDIAC FAILURE CONGESTIVE [None]
  - GASTROOESOPHAGEAL REFLUX DISEASE [None]
  - LOCALISED OEDEMA [None]
  - ARTERIOSCLEROSIS [None]
  - PERIPHERAL ARTERIAL OCCLUSIVE DISEASE [None]
